FAERS Safety Report 7455010-7 (Version None)
Quarter: 2011Q2

REPORT INFORMATION
  Report Type: 
  Country: None (occurrence: None)
  Receive Date: 20110503
  Receipt Date: 20110422
  Transmission Date: 20111010
  Serious: Yes (Hospitalization)
  Sender: FDA-Public Use
  Company Number: US-BRISTOL-MYERS SQUIBB COMPANY-15565591

PATIENT
  Age: 74 Year
  Sex: Male

DRUGS (12)
  1. ASPIRIN [Concomitant]
  2. DILTIAZEM HCL [Concomitant]
  3. PREDNISONE [Concomitant]
  4. ALLOPURINOL [Concomitant]
  5. IMODIUM [Concomitant]
  6. PLAVIX [Concomitant]
  7. K-DUR [Concomitant]
  8. PROTONIX [Concomitant]
  9. IPILIMUMAB [Suspect]
     Indication: MALIGNANT MELANOMA
     Dosage: LAST DOSE ON 08-FEB-2011
     Route: 042
     Dates: start: 20110118
  10. ANDROGEL [Concomitant]
  11. CARVEDILOL [Concomitant]
  12. INSULIN SLIDING SCALE [Concomitant]

REACTIONS (3)
  - DEHYDRATION [None]
  - DIARRHOEA [None]
  - GASTROINTESTINAL HAEMORRHAGE [None]
